FAERS Safety Report 6574849-3 (Version None)
Quarter: 2010Q1

REPORT INFORMATION
  Report Type: 
  Country: None (occurrence: None)
  Receive Date: 20100209
  Receipt Date: 20100126
  Transmission Date: 20100710
  Serious: Yes (Other)
  Sender: FDA-Public Use
  Company Number: PHHY2010DE05264

PATIENT
  Sex: Male

DRUGS (4)
  1. DIOVAN [Suspect]
     Dosage: 120 MG-160 MG DAILY
     Route: 048
     Dates: start: 20050101
  2. CONCOR [Concomitant]
     Dosage: 2.5 MG, BID
     Route: 048
  3. SANDOCAL [Concomitant]
  4. ALDACTONE [Concomitant]

REACTIONS (2)
  - AMYLOIDOSIS [None]
  - POLYNEUROPATHY [None]
